FAERS Safety Report 10762897 (Version 1)
Quarter: 2015Q1

REPORT INFORMATION
  Report Type: Spontaneous
  Country: KR (occurrence: KR)
  Receive Date: 20150204
  Receipt Date: 20150204
  Transmission Date: 20150721
  Serious: Yes (Hospitalization, Other)
  Sender: FDA-Public Use
  Company Number: KR-WATSON-2015-01025

PATIENT
  Age: 45 Year
  Sex: Male

DRUGS (1)
  1. SILDENAFIL (UNKNOWN) [Suspect]
     Active Substance: SILDENAFIL
     Indication: MALE SEXUAL DYSFUNCTION
     Dosage: 250 MG, TOTAL
     Route: 048

REACTIONS (3)
  - Rhabdomyolysis [Recovered/Resolved]
  - Visual impairment [Recovered/Resolved]
  - Overdose [Recovered/Resolved]
